FAERS Safety Report 8547939-3 (Version None)
Quarter: 2012Q3

REPORT INFORMATION
  Report Type: 
  Country: None (occurrence: None)
  Receive Date: 20120728
  Receipt Date: 20101213
  Transmission Date: 20120928
  Serious: Yes (Hospitalization, Other)
  Sender: FDA-Public Use
  Company Number: US-BAYER-201040897NA

PATIENT
  Age: 43 Year
  Sex: Female
  Weight: 122.2 kg

DRUGS (6)
  1. YAZ [Suspect]
     Route: 048
  2. YAZ [Suspect]
     Indication: ORAL CONTRACEPTION
     Route: 048
     Dates: start: 20070701
  3. YAZ [Suspect]
     Route: 048
     Dates: end: 20091201
  4. YAZ [Suspect]
     Route: 048
  5. MULTI-VITAMIN [Concomitant]
  6. YAZ [Suspect]
     Route: 048

REACTIONS (6)
  - DEEP VEIN THROMBOSIS [None]
  - CHOLELITHIASIS [None]
  - CHOLECYSTITIS ACUTE [None]
  - ABDOMINAL PAIN [None]
  - OEDEMA PERIPHERAL [None]
  - PAIN IN EXTREMITY [None]
